FAERS Safety Report 7740933-1 (Version None)
Quarter: 2011Q3

REPORT INFORMATION
  Report Type: 
  Country: None (occurrence: None)
  Receive Date: 20110909
  Receipt Date: 20110831
  Transmission Date: 20111222
  Serious: Yes (Other)
  Sender: FDA-Public Use
  Company Number: PHHY2011CA59510

PATIENT
  Sex: Male

DRUGS (1)
  1. AFINITOR [Suspect]
     Indication: NEUROENDOCRINE TUMOUR
     Dosage: 10 MG, QD
     Route: 048
     Dates: start: 20110620

REACTIONS (7)
  - PHARYNGEAL OEDEMA [None]
  - STOMATITIS [None]
  - DYSPHAGIA [None]
  - RASH [None]
  - INTERNATIONAL NORMALISED RATIO DECREASED [None]
  - FATIGUE [None]
  - DIARRHOEA [None]
